FAERS Safety Report 6438042-7 (Version None)
Quarter: 2009Q4

REPORT INFORMATION
  Report Type: 
  Country: None (occurrence: None)
  Receive Date: 20091112
  Receipt Date: 20091104
  Transmission Date: 20100525
  Serious: Yes (Hospitalization)
  Sender: FDA-Public Use
  Company Number: US-JNJFOC-20091102007

PATIENT
  Sex: Female
  Weight: 32.93 kg

DRUGS (3)
  1. INFLIXIMAB [Suspect]
     Indication: INFLAMMATORY BOWEL DISEASE
     Route: 042
  2. MESALAZINE [Concomitant]
     Indication: INFLAMMATORY BOWEL DISEASE
  3. IRON [Concomitant]

REACTIONS (2)
  - DEVICE RELATED INFECTION [None]
  - SEPTIC SHOCK [None]
